FAERS Safety Report 6751444 (Version 2)
Quarter: 2013Q1

REPORT INFORMATION
  Report Type: Spontaneous
  Country: NL (occurrence: None)
  Receive Date: 20080826
  Receipt Date: 20130114
  Transmission Date: 20140127
  Serious: Yes (Hospitalization)
  Sender: FDA-Public Use
  Company Number: 2008AP002051

PATIENT
  Age: 66 Year
  Sex: Male

DRUGS (3)
  1. CARBAMAZEPINE (CARBAMAZEPINE) [Suspect]
     Indication: EPILEPSY
     Dosage: 400 MG; BID
  2. PHENOBARBITAL [Suspect]
     Indication: EPILEPSY
  3. CLARITHROMYCIN [Suspect]
     Indication: SINUSITIS
     Dosage: 500 MG; BID

REACTIONS (6)
  - Toxicity to various agents [None]
  - Balance disorder [None]
  - Diplopia [None]
  - Dysarthria [None]
  - Sinusitis [None]
  - Drug interaction [None]
